FAERS Safety Report 4286423-2 (Version None)
Quarter: 2004Q1

REPORT INFORMATION
  Report Type: 
  Country: None (occurrence: None)
  Receive Date: 20040204
  Receipt Date: 20040121
  Transmission Date: 20041129
  Serious: Yes (Hospitalization)
  Sender: FDA-Public Use
  Company Number: CERZ-10475

PATIENT
  Age: 17 Year
  Sex: Female
  Weight: 65.8 kg

DRUGS (2)
  1. CEREZYME [Suspect]
     Indication: GAUCHER'S DISEASE
     Dosage: 60 U/KG Q2WKS IV
     Route: 042
     Dates: start: 19970815, end: 20000918
  2. CEREZYME [Suspect]
     Indication: GAUCHER'S DISEASE
     Dosage: 60 U/KG Q4WKS IV
     Route: 042
     Dates: start: 20000918

REACTIONS (1)
  - PELVIC INFLAMMATORY DISEASE [None]
